FAERS Safety Report 9730637 (Version 2)
Quarter: 2014Q1

REPORT INFORMATION
  Report Type: Spontaneous
  Country: US (occurrence: US)
  Receive Date: 20131202
  Receipt Date: 20140102
  Transmission Date: 20141002
  Serious: No
  Sender: FDA-Public Use
  Company Number: US-AMGEN-USASP2013084569

PATIENT
  Age: 41 Year
  Sex: Female
  Weight: 55.78 kg

DRUGS (5)
  1. ENBREL [Suspect]
     Indication: RHEUMATOID ARTHRITIS
     Dosage: 50 MG, QWK
     Route: 058
     Dates: start: 20131028, end: 20131129
  2. METHOTREXATE [Concomitant]
     Dosage: UNK MG, QWK
  3. LYRICA [Concomitant]
     Dosage: 50 MG, QD
     Route: 048
     Dates: start: 20131129
  4. MOBIC [Concomitant]
     Dosage: 15 MG, QD
     Route: 048
  5. PROBIOTIC                          /06395501/ [Concomitant]
     Dosage: 12.5 MG, QD
     Route: 048

REACTIONS (7)
  - Skin lesion [Recovered/Resolved]
  - Injection site reaction [Recovered/Resolved]
  - Injection site erythema [Recovered/Resolved]
  - Injection site pruritus [Recovered/Resolved]
  - Injection site swelling [Recovered/Resolved]
  - Injection site paraesthesia [Not Recovered/Not Resolved]
  - Injection site pain [Not Recovered/Not Resolved]
